FAERS Safety Report 6573092-1 (Version None)
Quarter: 2010Q1

REPORT INFORMATION
  Report Type: 
  Country: None (occurrence: None)
  Receive Date: 20100208
  Receipt Date: 20100129
  Transmission Date: 20100710
  Serious: Yes (Other)
  Sender: FDA-Public Use
  Company Number: SE-JNJFOC-20091105628

PATIENT
  Age: 82 Year
  Sex: Female

DRUGS (6)
  1. REMINYL [Suspect]
     Indication: DRUG USE FOR UNKNOWN INDICATION
     Route: 065
  2. REMINYL [Suspect]
     Route: 065
  3. REMINYL [Suspect]
     Route: 065
  4. REMINYL [Suspect]
     Route: 065
  5. MEMANTINE HCL [Suspect]
     Indication: DRUG USE FOR UNKNOWN INDICATION
     Route: 065
  6. MEMANTINE HCL [Suspect]
     Route: 065

REACTIONS (2)
  - ILEUS [None]
  - NAUSEA [None]
